FAERS Safety Report 24264795 (Version 2)
Quarter: 2024Q3

REPORT INFORMATION
  Report Type: Spontaneous
  Country: BE (occurrence: BE)
  Receive Date: 20240829
  Receipt Date: 20240925
  Transmission Date: 20241016
  Serious: Yes (Other)
  Sender: BAXTER
  Company Number: BE-BAXTER-2024BAX022593

PATIENT

DRUGS (5)
  1. TISSEEL [Suspect]
     Active Substance: FIBRINOGEN HUMAN\THROMBIN HUMAN
     Indication: Surgery
     Dosage: UNK
     Route: 065
     Dates: start: 20240611, end: 20240611
  2. TISSEEL [Suspect]
     Active Substance: FIBRINOGEN HUMAN\THROMBIN HUMAN
     Indication: Surgery
     Dosage: UNK
     Route: 065
     Dates: start: 20240611, end: 20240611
  3. TISSEEL [Suspect]
     Active Substance: FIBRINOGEN HUMAN\THROMBIN HUMAN
     Indication: Surgery
     Dosage: UNK
     Route: 065
     Dates: start: 20240611, end: 20240611
  4. THROMBIN [Suspect]
     Active Substance: THROMBIN
     Indication: Surgery
     Dosage: UNK
     Route: 065
     Dates: start: 20240611
  5. TACHOSIL [Suspect]
     Active Substance: FIBRINOGEN HUMAN\THROMBIN HUMAN
     Dosage: (REF: 12667478A)
     Route: 065

REACTIONS (1)
  - Infection [Unknown]

NARRATIVE: CASE EVENT DATE: 20240611
